FAERS Safety Report 14230613 (Version 1)
Quarter: 2017Q4

REPORT INFORMATION
  Report Type: Spontaneous
  Country: FR (occurrence: FR)
  Receive Date: 20171128
  Receipt Date: 20171128
  Transmission Date: 20180321
  Serious: Yes (Other)
  Sender: FDA-Public Use
  Company Number: FR-SA-2017SA228677

PATIENT
  Age: 71 Year
  Sex: Female

DRUGS (1)
  1. TELITHROMYCIN [Suspect]
     Active Substance: TELITHROMYCIN
     Route: 065

REACTIONS (1)
  - Drug-induced liver injury [Unknown]

NARRATIVE: CASE EVENT DATE: 2009
